FAERS Safety Report 11571998 (Version 1)
Quarter: 2015Q3

REPORT INFORMATION
  Report Type: Spontaneous
  Country: US (occurrence: US)
  Receive Date: 20150929
  Receipt Date: 20150929
  Transmission Date: 20151125
  Serious: No
  Sender: FDA-Public Use
  Company Number: US-SA-2015SA129578

PATIENT
  Age: 61 Year
  Sex: Female

DRUGS (9)
  1. AUBAGIO [Suspect]
     Active Substance: TERIFLUNOMIDE
     Indication: MULTIPLE SCLEROSIS
     Route: 048
     Dates: start: 20150402
  2. NORETHIN [Concomitant]
  3. PRAVASTATIN [Concomitant]
     Active Substance: PRAVASTATIN\PRAVASTATIN SODIUM
  4. AMANTADINE [Concomitant]
     Active Substance: AMANTADINE
  5. LEVOTHYROXINE. [Concomitant]
     Active Substance: LEVOTHYROXINE
  6. AVONEX [Concomitant]
     Active Substance: INTERFERON BETA-1A
  7. GABAPENTIN. [Concomitant]
     Active Substance: GABAPENTIN
  8. ESTRADIOL. [Concomitant]
     Active Substance: ESTRADIOL
  9. LISINOPRIL. [Concomitant]
     Active Substance: LISINOPRIL

REACTIONS (1)
  - Alopecia [Not Recovered/Not Resolved]

NARRATIVE: CASE EVENT DATE: 20150501
